FAERS Safety Report 16235680 (Version 1)
Quarter: 2019Q2

REPORT INFORMATION
  Report Type: Spontaneous
  Country: TR (occurrence: TR)
  Receive Date: 20190424
  Receipt Date: 20190424
  Transmission Date: 20190711
  Serious: Yes (Hospitalization)
  Sender: FDA-Public Use
  Company Number: TR-PRINSTON PHARMACEUTICAL INC.-2019PRN00438

PATIENT
  Age: 63 Year
  Sex: Female

DRUGS (3)
  1. DULOXETINE. [Suspect]
     Active Substance: DULOXETINE
     Indication: MAJOR DEPRESSION
     Dosage: 30 MG, 1X/DAY
     Route: 065
  2. PREMIXED INSULIN [Concomitant]
     Route: 065
  3. DULOXETINE. [Suspect]
     Active Substance: DULOXETINE
     Dosage: 60 MG, 1X/DAY
     Route: 065

REACTIONS (3)
  - Uraemic encephalopathy [Recovered/Resolved]
  - Urinary retention [Recovered/Resolved]
  - Acute kidney injury [Recovered/Resolved]
